FAERS Safety Report 18762918 (Version 1)
Quarter: 2021Q1

REPORT INFORMATION
  Report Type: Spontaneous
  Country: US (occurrence: US)
  Receive Date: 20210120
  Receipt Date: 20210120
  Transmission Date: 20210419
  Serious: Yes (Death, Hospitalization)
  Sender: FDA-Public Use
  Company Number: US-MYLANLABS-2021M1003091

PATIENT
  Age: 79 Year
  Sex: Female

DRUGS (7)
  1. DOXIFLURIDINE [Suspect]
     Active Substance: DOXIFLURIDINE
     Indication: INVASIVE DUCTAL BREAST CARCINOMA
     Dosage: ADJUVANT CHEMOTHERAPY WITH A DAC REGIMEN
     Route: 065
  2. LOPERAMIDE [Concomitant]
     Active Substance: LOPERAMIDE
     Indication: DIARRHOEA
     Dosage: UNK
     Route: 065
  3. ONDANSETRON [Concomitant]
     Active Substance: ONDANSETRON
     Indication: NAUSEA
     Dosage: UNK
     Route: 065
  4. DOXORUBICIN [Suspect]
     Active Substance: DOXORUBICIN
     Indication: INVASIVE DUCTAL BREAST CARCINOMA
     Dosage: ADJUVANT CHEMOTHERAPY WITH A DAC REGIMEN
     Route: 065
  5. PACLITAXEL. [Suspect]
     Active Substance: PACLITAXEL
     Indication: INVASIVE DUCTAL BREAST CARCINOMA
     Dosage: UNK, QW(WEEKLY)
     Route: 065
  6. CYCLOPHOSPHAMIDE. [Suspect]
     Active Substance: CYCLOPHOSPHAMIDE
     Indication: INVASIVE DUCTAL BREAST CARCINOMA
     Dosage: ADJUVANT CHEMOTHERAPY WITH A DAC REGIMEN
     Route: 065
  7. FILGRASTIM [Concomitant]
     Active Substance: FILGRASTIM
     Indication: NEUTROPENIA
     Dosage: UNK
     Route: 065

REACTIONS (11)
  - Intestinal perforation [Fatal]
  - Haemodynamic instability [Fatal]
  - Multiple organ dysfunction syndrome [Fatal]
  - Diarrhoea [Unknown]
  - Neutropenia [Fatal]
  - Hypotension [Fatal]
  - Shock [Fatal]
  - Nausea [Unknown]
  - Decreased appetite [Unknown]
  - Pyrexia [Unknown]
  - Lethargy [Unknown]
